FAERS Safety Report 19265765 (Version 3)
Quarter: 2023Q4

REPORT INFORMATION
  Report Type: Report from Study
  Country: AT (occurrence: AT)
  Receive Date: 20210518
  Receipt Date: 20231006
  Transmission Date: 20240110
  Serious: Yes (Other)
  Sender: FDA-Public Use
  Company Number: AT-CELLTRION INC.-2021AT006495

PATIENT

DRUGS (7)
  1. HERCEPTIN [Suspect]
     Active Substance: TRASTUZUMAB
     Indication: HER2 positive breast cancer
     Dosage: 8 MILLIGRAM, EVERY 3 WEEKS (MOST RECENT DOSE PRIOR TO THE EVENT: 04/MAR/2019)
     Route: 042
     Dates: start: 20190208, end: 20190208
  2. TRASTUZUMAB [Suspect]
     Active Substance: TRASTUZUMAB
     Indication: HER2 positive breast cancer
     Dosage: 8 MG, EVERY 3 WEEKS (MOST RECENT DOSE PRIOR TO THE EVENT: 04/MAR/2019)
     Route: 042
     Dates: start: 20190208, end: 20190208
  3. PERTUZUMAB [Suspect]
     Active Substance: PERTUZUMAB
     Indication: HER2 positive breast cancer
     Dosage: 840 MG, EVERY 3 WEEKS (MOST RECENT DOSE PRIOR TO THE EVENT: 04/MAR/2019)
     Route: 042
     Dates: start: 20190208, end: 20190208
  4. VINORELBINE [Suspect]
     Active Substance: VINORELBINE TARTRATE
     Indication: HER2 positive breast cancer
     Dosage: 50 MG (MOST RECENT DOSE PRIOR TO EVENT ONSET: 18/SEP/2019)
     Route: 048
     Dates: start: 20190418
  5. ANASTROZOLE [Suspect]
     Active Substance: ANASTROZOLE
     Indication: HER2 positive breast cancer
     Dosage: 1 MG, QD
     Route: 048
     Dates: start: 20191113
  6. LETROZOLE [Suspect]
     Active Substance: LETROZOLE
     Indication: HER2 positive breast cancer
     Dosage: 2.5 MG, QD (MOST RECENT DOSE PRIOR TO EVENT ONSET: 12/NOV/2019)
     Route: 048
     Dates: start: 20190208
  7. GOSERELIN [Suspect]
     Active Substance: GOSERELIN
     Indication: HER2 positive breast cancer
     Dosage: 3.6 MG
     Route: 058
     Dates: start: 20190208

REACTIONS (2)
  - Toxic skin eruption [Recovered/Resolved]
  - Underdose [Unknown]

NARRATIVE: CASE EVENT DATE: 20200909
